FAERS Safety Report 18348574 (Version 2)
Quarter: 2021Q3

REPORT INFORMATION
  Report Type: Spontaneous
  Country: AU (occurrence: AU)
  Receive Date: 20201006
  Receipt Date: 20210929
  Transmission Date: 20211014
  Serious: Yes (Hospitalization, Other)
  Sender: FDA-Public Use
  Company Number: AU-GENERIC HEALTH PTY. LTD.-2020-06866

PATIENT
  Age: 56 Year
  Sex: Female
  Weight: 51 kg

DRUGS (10)
  1. CALCIUM [Suspect]
     Active Substance: CALCIUM
     Indication: HYPOCALCAEMIA
     Dosage: 20ML UNK CALCIUM GLUCONATE CONTAINING 4.4MMOL IN 250ML OF 0.9% SODIUM CHLORIDE OVER 2 HOURS IN EMERG
     Route: 042
  2. LACTULOSE. [Suspect]
     Active Substance: LACTULOSE
     Indication: PRODUCT USED FOR UNKNOWN INDICATION
     Dosage: 20 MILLILITER, EVERY 4HOURS
     Route: 065
  3. CALCITRIOL. [Concomitant]
     Active Substance: CALCITRIOL
     Indication: PRODUCT USED FOR UNKNOWN INDICATION
     Dosage: 0.25 MILLIGRAM BID
     Route: 048
  4. DENOSUMAB [Suspect]
     Active Substance: DENOSUMAB
     Indication: OSTEOPOROSIS
     Dosage: 60 MILLIGRAM UNK (PRESENTED 3 WEEKS AFTER RECEIVING THIRD DOSE OF DENOSUMAB)
     Route: 058
  5. CALCIUM [Suspect]
     Active Substance: CALCIUM
     Dosage: 1200 MILLIGRAM, BID
     Route: 048
  6. CALCIUM [Suspect]
     Active Substance: CALCIUM
     Dosage: 10ML CALCIUM GLUCONATE CONTAINING 2.2MMOL IN 100ML OF 0.9% SODIUM CHLORIDE OVER 1 HOUR IN EMERGENCY
     Route: 042
  7. SALINE [SODIUM CHLORIDE] [Concomitant]
     Active Substance: SODIUM CHLORIDE
     Indication: VEHICLE SOLUTION USE
     Dosage: 250 MILLIGRAM UNK (CALCIUM GLUCONATE GIVEN IN 250ML OF 0.9% SODIUM CHLORIDE OVER 2 HOURS IN EMERGENC
     Route: 042
  8. PANTOPRAZOLE [Suspect]
     Active Substance: PANTOPRAZOLE
     Indication: PRODUCT USED FOR UNKNOWN INDICATION
     Dosage: 40 MILLIGRAM BID
     Route: 065
  9. SALINE [SODIUM CHLORIDE] [Concomitant]
     Active Substance: SODIUM CHLORIDE
     Dosage: 100 MILLIGRAM UNK (CALCIUM GLUCONATE GIVEN IN 100ML OF 0.9% SODIUM CHLORIDE OVER 1 HOUR IN )
     Route: 042
  10. THIAMINE. [Concomitant]
     Active Substance: THIAMINE
     Indication: PRODUCT USED FOR UNKNOWN INDICATION
     Dosage: 100 MILLIGRAM TID
     Route: 065

REACTIONS (12)
  - Electrocardiogram QT prolonged [Recovered/Resolved]
  - Nausea [Unknown]
  - Hypophosphataemia [Recovered/Resolved]
  - Blood parathyroid hormone increased [Unknown]
  - Vomiting [Unknown]
  - Diarrhoea [Recovered/Resolved]
  - Muscle spasms [Unknown]
  - Hypocalcaemia [Recovered/Resolved]
  - Condition aggravated [Recovered/Resolved]
  - Abdominal pain upper [Unknown]
  - Paraesthesia [Unknown]
  - Supraventricular tachycardia [Unknown]
